FAERS Safety Report 5239674-4 (Version None)
Quarter: 2007Q1

REPORT INFORMATION
  Report Type: 
  Country: None (occurrence: None)
  Receive Date: 20070212
  Receipt Date: 20070125
  Transmission Date: 20070707
  Serious: Yes (Hospitalization)
  Sender: FDA-Public Use
  Company Number: 2007JP000304

PATIENT
  Age: 63 Year
  Sex: Female
  Weight: 34 kg

DRUGS (9)
  1. PROGRAF [Suspect]
     Indication: CORD BLOOD TRANSPLANT THERAPY
     Dosage: 0.8 MG, UID/QD, IV DRIP
     Route: 041
     Dates: start: 20060907, end: 20061026
  2. PROGRAF [Suspect]
     Indication: CORD BLOOD TRANSPLANT THERAPY
     Dosage: SEE IMAGE
     Route: 048
     Dates: start: 20061027, end: 20070101
  3. PROGRAF [Suspect]
     Indication: CORD BLOOD TRANSPLANT THERAPY
     Dosage: SEE IMAGE
     Route: 048
     Dates: start: 20070103
  4. BAKTAR (SULFAMETHOXAZOLE, TRIMETHOPRIM) TABLET [Concomitant]
  5. ITRIZOLE (ITRACONAZOLE) CAPSULE [Concomitant]
  6. ALPRAZOLAM [Concomitant]
  7. TAKEPRON (LANSOPRAZOLE) ORODSPERSABLE CR TABLET [Concomitant]
  8. ITOROL (ISOSORBDE MONONITRATE) CAPSULE [Concomitant]
  9. PREDNISOLONE [Concomitant]

REACTIONS (2)
  - CYTOMEGALOVIRUS INFECTION [None]
  - HYPOCOAGULABLE STATE [None]
